FAERS Safety Report 10179223 (Version 1)
Quarter: 2014Q2

REPORT INFORMATION
  Report Type: Spontaneous
  Country: US (occurrence: US)
  Receive Date: 20140519
  Receipt Date: 20140519
  Transmission Date: 20141212
  Serious: No
  Sender: FDA-Public Use
  Company Number: US-PFIZER INC-2014136290

PATIENT
  Age: 52 Year
  Sex: Female
  Weight: 74.83 kg

DRUGS (3)
  1. CHANTIX [Suspect]
     Indication: SMOKING CESSATION THERAPY
     Dosage: UNK
  2. XANAX [Concomitant]
     Dosage: 2 MG, AS NEEDED
  3. TRAZODONE [Concomitant]
     Dosage: [100 MG IN THE MORNING AND 300 MG IN THE NIGHT

REACTIONS (1)
  - Abnormal dreams [Unknown]
